FAERS Safety Report 6238435-7 (Version None)
Quarter: 2009Q2

REPORT INFORMATION
  Report Type: 
  Country: None (occurrence: None)
  Receive Date: 20090618
  Receipt Date: 20090616
  Transmission Date: 20091009
  Serious: Yes (Other)
  Sender: FDA-Public Use
  Company Number: JHP200900193

PATIENT
  Age: 57 Year
  Sex: Female

DRUGS (6)
  1. EPINEPHRINE [Suspect]
     Indication: LOCAL ANAESTHESIA
     Dosage: 15 ML OF SOLUTION, 10 ML OF SOLUTION, 5 ML OF SOLUTION,
     Route: 042
  2. LIDOCAINE 1.5% [Suspect]
     Indication: LOCAL ANAESTHESIA
     Dosage: 15 ML OF SOLUTION; 10 ML OF SOLUTION; 5 ML OF SOLUTION
     Route: 042
  3. BUPIVACAINE [Suspect]
     Indication: LOCAL ANAESTHESIA
     Dosage: 15 ML OF SOLUTION; 10 ML OF SOLUTION; 5 ML OF SOLUTION
     Route: 042
  4. FENTANYL-100 [Concomitant]
  5. MIDAZOLAM HCL [Concomitant]
  6. OXYGEN (OXYGEN) [Concomitant]

REACTIONS (9)
  - AGITATION [None]
  - BRAIN OEDEMA [None]
  - COORDINATION ABNORMAL [None]
  - DIZZINESS [None]
  - DRUG TOXICITY [None]
  - HEART RATE INCREASED [None]
  - HYPERTENSION [None]
  - INCORRECT ROUTE OF DRUG ADMINISTRATION [None]
  - LOSS OF CONSCIOUSNESS [None]
